FAERS Safety Report 16489707 (Version 1)
Quarter: 2019Q2

REPORT INFORMATION
  Report Type: Spontaneous
  Country: CN (occurrence: CN)
  Receive Date: 20190628
  Receipt Date: 20190628
  Transmission Date: 20190711
  Serious: Yes (Hospitalization)
  Sender: FDA-Public Use
  Company Number: CN-BAXTER-2019BAX012606

PATIENT
  Age: 26 Year
  Sex: Male
  Weight: 65 kg

DRUGS (8)
  1. VP-16 [Suspect]
     Active Substance: ETOPOSIDE
     Dosage: DRUG RE-INTRODUCED. VP-16 + NS
     Route: 041
  2. HOLOXAN [Suspect]
     Active Substance: IFOSFAMIDE
     Dosage: DRUG RE-INTRODUCED. HOLOXAN + NS
     Route: 041
  3. 0.9% SODIUM CHLORIDE INJECTION [Suspect]
     Active Substance: SODIUM CHLORIDE
     Indication: MEDICATION DILUTION
     Dosage: HOLOXAN 3 GRAMS + NS, ON DAYS 1 TO 5
     Route: 041
     Dates: start: 20190505, end: 20190509
  4. 0.9% SODIUM CHLORIDE INJECTION [Suspect]
     Active Substance: SODIUM CHLORIDE
     Dosage: DRUG RE-INTRODUCED. HOLOXAN + NS
     Route: 041
  5. 0.9% SODIUM CHLORIDE INJECTION [Suspect]
     Active Substance: SODIUM CHLORIDE
     Dosage: VP-16 165 MG + NS, ON DAYS 1 TO 5
     Route: 041
     Dates: start: 20190505, end: 20190509
  6. 0.9% SODIUM CHLORIDE INJECTION [Suspect]
     Active Substance: SODIUM CHLORIDE
     Dosage: DRUG RE-INTRODUCED. VP-16 + NS
     Route: 041
  7. VP-16 [Suspect]
     Active Substance: ETOPOSIDE
     Indication: EWING^S SARCOMA
     Dosage: VP-16 + NS 1000 ML, ON DAYS 1 TO 5
     Route: 041
     Dates: start: 20190505, end: 20190509
  8. HOLOXAN [Suspect]
     Active Substance: IFOSFAMIDE
     Indication: EWING^S SARCOMA
     Dosage: HOLOXAN + NS (NORMAL SALINE) 500 ML, ON DAYS 1 TO 5
     Route: 041
     Dates: start: 20190505, end: 20190509

REACTIONS (1)
  - Bone marrow failure [Recovering/Resolving]

NARRATIVE: CASE EVENT DATE: 20190515
